FAERS Safety Report 19035355 (Version 1)
Quarter: 2021Q1

REPORT INFORMATION
  Report Type: Other
  Country: US (occurrence: US)
  Receive Date: 20210320
  Receipt Date: 20210320
  Transmission Date: 20210420
  Serious: No
  Sender: FDA-Public Use
  Company Number: US-ACORDA-ACO_168094_2021

PATIENT
  Age: 64 Year
  Sex: Female

DRUGS (3)
  1. RYTARY [Concomitant]
     Active Substance: CARBIDOPA\LEVODOPA
     Indication: PRODUCT USED FOR UNKNOWN INDICATION
     Dosage: 4 TIMES PER DAY
     Route: 065
  2. INBRIJA [Suspect]
     Active Substance: LEVODOPA
     Indication: PARKINSON^S DISEASE
     Dosage: 84 MILLIGRAM, AS NEEDED, NOT TO EXCEED 5 DOSES
  3. INBRIJA [Suspect]
     Active Substance: LEVODOPA
     Indication: ON AND OFF PHENOMENON
     Dosage: 84 MILLIGRAM, AS NEEDED, NOT TO EXCEED 5 DOSES

REACTIONS (9)
  - Vertigo [Unknown]
  - Product communication issue [Unknown]
  - Headache [Unknown]
  - Product packaging difficult to open [Unknown]
  - Middle insomnia [Unknown]
  - Dizziness [Unknown]
  - Adverse event [Unknown]
  - Vestibular migraine [Unknown]
  - Product residue present [Unknown]

NARRATIVE: CASE EVENT DATE: 20210312
